FAERS Safety Report 25267794 (Version 1)
Quarter: 2025Q2

REPORT INFORMATION
  Report Type: Spontaneous
  Country: US (occurrence: US)
  Receive Date: 20250505
  Receipt Date: 20250505
  Transmission Date: 20250716
  Serious: Yes (Death, Other)
  Sender: CIPLA
  Company Number: US-CIPLA LTD.-2025US05302

PATIENT

DRUGS (7)
  1. SILDENAFIL [Suspect]
     Active Substance: SILDENAFIL
     Indication: Pulmonary hypertension
     Route: 065
  2. VASOPRESSIN [Suspect]
     Active Substance: VASOPRESSIN
     Indication: Right-to-left cardiac shunt
     Route: 065
  3. VASOPRESSIN [Suspect]
     Active Substance: VASOPRESSIN
     Indication: Hypoxia
  4. VASOPRESSIN [Suspect]
     Active Substance: VASOPRESSIN
     Indication: Vascular resistance systemic
  5. TREPROSTINIL [Suspect]
     Active Substance: TREPROSTINIL
     Indication: Pulmonary hypertension
     Route: 065
  6. NITRIC OXIDE [Suspect]
     Active Substance: NITRIC OXIDE
     Indication: Pulmonary hypertension
  7. DOBUTAMINE [Suspect]
     Active Substance: DOBUTAMINE HYDROCHLORIDE
     Indication: Right ventricular failure
     Route: 065

REACTIONS (3)
  - Right ventricular failure [Fatal]
  - Condition aggravated [Fatal]
  - Drug ineffective [Unknown]
